FAERS Safety Report 8641009 (Version 2)
Quarter: 2015Q1

REPORT INFORMATION
  Report Type: Spontaneous
  Country: US (occurrence: US)
  Receive Date: 20120628
  Receipt Date: 20150319
  Transmission Date: 20150721
  Serious: Yes (Other)
  Sender: FDA-Public Use
  Company Number: US-BAYER-2012-063097

PATIENT
  Age: 28 Year
  Sex: Female
  Weight: 84 kg

DRUGS (5)
  1. RANITIDINE [Concomitant]
     Active Substance: RANITIDINE\RANITIDINE HYDROCHLORIDE
     Dosage: 150 MG, UNK
     Route: 048
     Dates: start: 20061007
  2. YAZ [Suspect]
     Active Substance: DROSPIRENONE\ETHINYL ESTRADIOL
     Indication: CONTRACEPTION
     Dosage: UNK
     Dates: start: 20061114, end: 20061218
  3. LOVASTATIN. [Concomitant]
     Active Substance: LOVASTATIN
  4. AZITHROMYCIN [Concomitant]
     Active Substance: AZITHROMYCIN ANHYDROUS
     Dosage: UNK
     Route: 048
     Dates: start: 20061007, end: 20061014
  5. BENZONATATE. [Concomitant]
     Active Substance: BENZONATATE
     Dosage: 200 MG, UNK
     Route: 048
     Dates: start: 20061028

REACTIONS (6)
  - Retinal artery occlusion [None]
  - Retinal artery thrombosis [None]
  - Blindness unilateral [None]
  - Migraine [None]
  - Retinal haemorrhage [None]
  - Fear of disease [None]

NARRATIVE: CASE EVENT DATE: 2006
